FAERS Safety Report 18570445 (Version 1)
Quarter: 2020Q4

REPORT INFORMATION
  Report Type: Spontaneous
  Country: US (occurrence: US)
  Receive Date: 20201202
  Receipt Date: 20201202
  Transmission Date: 20210114
  Serious: No
  Sender: FDA-Public Use
  Company Number: US-PFIZER INC-2020474766

PATIENT
  Age: 61 Year
  Sex: Female
  Weight: 72.57 kg

DRUGS (1)
  1. LATANOPROST. [Suspect]
     Active Substance: LATANOPROST
     Indication: OPEN ANGLE GLAUCOMA
     Dosage: 2 DROP, 1X/DAY (125MCG/2.5ML)
     Route: 047

REACTIONS (1)
  - Drug ineffective [Unknown]
